FAERS Safety Report 5065245-9 (Version None)
Quarter: 2006Q3

REPORT INFORMATION
  Report Type: 
  Country: None (occurrence: None)
  Receive Date: 20060725
  Receipt Date: 20060712
  Transmission Date: 20061208
  Serious: Yes (Other)
  Sender: FDA-Public Use
  Company Number: 2006088992

PATIENT
  Age: 36 Year
  Sex: Male
  Weight: 85 kg

DRUGS (5)
  1. SILDENAFIL CITRATE [Suspect]
     Indication: PULMONARY HYPERTENSION
     Dosage: 75 MG (25 MG, 3 IN 1 D), ORAL
     Route: 048
     Dates: start: 20020904
  2. BERAPROST SODIUM (BERAPROST SODIUM) [Concomitant]
  3. URSO 250 [Concomitant]
  4. ALDACTONE [Concomitant]
  5. LASIX [Concomitant]

REACTIONS (2)
  - CARDIAC FAILURE [None]
  - FACIAL PALSY [None]
